FAERS Safety Report 24374234 (Version 1)
Quarter: 2024Q3

REPORT INFORMATION
  Report Type: Spontaneous
  Country: US (occurrence: US)
  Receive Date: 20240927
  Receipt Date: 20240927
  Transmission Date: 20241016
  Serious: No
  Sender: TEVA
  Company Number: US-TEVA-VS-3242028

PATIENT
  Sex: Female

DRUGS (1)
  1. UZEDY [Suspect]
     Active Substance: RISPERIDONE
     Indication: Product used for unknown indication
     Dosage: 75/0.21 MG/ML
     Route: 065

REACTIONS (5)
  - Rash [Recovered/Resolved]
  - Device leakage [Unknown]
  - Injection site pruritus [Unknown]
  - Injection site rash [Unknown]
  - Pruritus [Recovered/Resolved]
